FAERS Safety Report 22039839 (Version 1)
Quarter: 2023Q1

REPORT INFORMATION
  Report Type: Spontaneous
  Country: US (occurrence: US)
  Receive Date: 20230227
  Receipt Date: 20230227
  Transmission Date: 20230417
  Serious: Yes (Other)
  Sender: FDA-Public Use
  Company Number: US-TEVA-2023-US-2859669

PATIENT
  Age: 66 Year
  Sex: Female

DRUGS (1)
  1. ZINC [Suspect]
     Active Substance: ZINC
     Indication: Dental care
     Route: 065

REACTIONS (1)
  - Copper deficiency [Recovered/Resolved]
